FAERS Safety Report 12589871 (Version 1)
Quarter: 2016Q3

REPORT INFORMATION
  Report Type: Spontaneous
  Country: FR (occurrence: FR)
  Receive Date: 20160725
  Receipt Date: 20160725
  Transmission Date: 20161109
  Serious: Yes (Hospitalization, Other)
  Sender: FDA-Public Use
  Company Number: FR-PFIZER INC-2016349304

PATIENT
  Age: 67 Year
  Sex: Female

DRUGS (10)
  1. NOVATREX NOS [Suspect]
     Active Substance: AZITHROMYCIN OR METHOTREXATE SODIUM
     Indication: RHEUMATOID ARTHRITIS
     Dosage: 12.5 MG WEEKLY (5 DF OF 2.5 MG ON TUESDAYS)
     Route: 048
     Dates: end: 201606
  2. SPECIAFOLDINE [Concomitant]
     Active Substance: FOLIC ACID
     Dosage: 1 DF, WEEKLY
  3. KALEORID 1000 [Concomitant]
     Dosage: 1 DF IN THE MORNING AND 1 DF IN THE EVENING
  4. LASILIX [Concomitant]
     Active Substance: FUROSEMIDE
     Indication: OEDEMA
     Dosage: 40 MG, DAILY
  5. LEXOMIL [Concomitant]
     Active Substance: BROMAZEPAM
     Dosage: STRENGTH 6MG 0.5 DF IN THE EVENING
  6. AMLOR [Concomitant]
     Active Substance: AMLODIPINE BESYLATE
     Dosage: STRENGTH 10 MG 1 DF IN THE MORNING
  7. LEVOTHYROX [Concomitant]
     Active Substance: LEVOTHYROXINE
     Dosage: 62.5 UG DAILY IN THE MORNING
  8. PYOSTACINE [Suspect]
     Active Substance: PRISTINAMYCIN
     Indication: ERYSIPELAS
     Dosage: UNK
     Dates: start: 20160512, end: 20160522
  9. FOSAVANCE [Concomitant]
     Active Substance: ALENDRONATE SODIUM\CHOLECALCIFEROL
     Dosage: STRENGTH 60/5600 1 DF, WEEKLY
  10. COTAREG 160/25 [Concomitant]
     Dosage: 1 DF IN THE MORNING
     Dates: end: 20160617

REACTIONS (10)
  - Blood disorder [Unknown]
  - Back pain [Unknown]
  - Hypermetabolism [Unknown]
  - Acute kidney injury [Unknown]
  - Overdose [Unknown]
  - Arthritis [Unknown]
  - Toxicity to various agents [Unknown]
  - Disease progression [Unknown]
  - Pancytopenia [Recovered/Resolved]
  - Pleural effusion [Unknown]

NARRATIVE: CASE EVENT DATE: 20160613
